FAERS Safety Report 11624804 (Version 3)
Quarter: 2017Q1

REPORT INFORMATION
  Report Type: Spontaneous
  Country: FR (occurrence: FR)
  Receive Date: 20151013
  Receipt Date: 20170217
  Transmission Date: 20170428
  Serious: Yes (Hospitalization, Disabling, Other)
  Sender: FDA-Public Use
  Company Number: FR-ABBVIE-15K-056-1478392-00

PATIENT
  Age: 52 Year
  Sex: Male
  Weight: 99 kg

DRUGS (4)
  1. LAMALINE [Concomitant]
     Active Substance: ACETAMINOPHEN\CAFFEINE\OPIUM
     Indication: PRODUCT USED FOR UNKNOWN INDICATION
     Dosage: 2 TO 3 TIMES A DAY IF NEEDED
  2. INIPOMP [Concomitant]
     Active Substance: PANTOPRAZOLE SODIUM
     Indication: PRODUCT USED FOR UNKNOWN INDICATION
  3. HUMIRA [Suspect]
     Active Substance: ADALIMUMAB
     Indication: PSORIATIC ARTHROPATHY
     Route: 058
     Dates: start: 2012, end: 20150704
  4. CORTANCYL [Concomitant]
     Active Substance: PREDNISONE
     Indication: PRODUCT USED FOR UNKNOWN INDICATION

REACTIONS (4)
  - Dyspnoea [Not Recovered/Not Resolved]
  - Amyotrophic lateral sclerosis [Not Recovered/Not Resolved]
  - Aspiration [Unknown]
  - Ataxia [Unknown]

NARRATIVE: CASE EVENT DATE: 201503
